FAERS Safety Report 9586276 (Version 2)
Quarter: 2013Q4

REPORT INFORMATION
  Report Type: Spontaneous
  Country: US (occurrence: None)
  Receive Date: 20131001
  Receipt Date: 20131028
  Transmission Date: 20140711
  Serious: Yes (Other)
  Sender: FDA-Public Use
  Company Number: 2013US002549

PATIENT
  Age: 45 Year
  Sex: Male

DRUGS (6)
  1. PONATINIB [Suspect]
     Indication: CHRONIC MYELOID LEUKAEMIA
     Route: 048
     Dates: start: 20091104
  2. PONATINIB [Suspect]
     Indication: HAEMATOLOGICAL MALIGNANCY
     Route: 048
     Dates: start: 20091104
  3. AMLODIPINE (AMLODIPINE) [Concomitant]
  4. VALSARTAN (VALSARTAN) [Concomitant]
  5. HYDROCHLOROTHIAZIDE (HYDROCHLOROTHIAZIDE) [Concomitant]
  6. TYLENOL (PARACETAMOL) [Concomitant]

REACTIONS (1)
  - Miscarriage of partner [None]
